FAERS Safety Report 23499239 (Version 1)
Quarter: 2024Q1

REPORT INFORMATION
  Report Type: Report from Study
  Country: JP (occurrence: JP)
  Receive Date: 20240208
  Receipt Date: 20240208
  Transmission Date: 20240410
  Serious: Yes (Death, Hospitalization, Other)
  Sender: FDA-Public Use
  Company Number: JP-ABBVIE-5183721

PATIENT
  Age: 68 Year
  Sex: Female

DRUGS (55)
  1. VENCLEXTA [Suspect]
     Active Substance: VENETOCLAX
     Indication: Acute myeloid leukaemia
     Route: 048
     Dates: start: 20230105, end: 20230118
  2. VENCLEXTA [Suspect]
     Active Substance: VENETOCLAX
     Indication: Acute myeloid leukaemia
     Route: 048
     Dates: start: 20220818, end: 20220905
  3. VENCLEXTA [Suspect]
     Active Substance: VENETOCLAX
     Indication: Acute myeloid leukaemia
     Route: 048
     Dates: start: 20220216, end: 20220216
  4. VENCLEXTA [Suspect]
     Active Substance: VENETOCLAX
     Indication: Acute myeloid leukaemia
     Route: 048
     Dates: start: 20221005, end: 20221018
  5. VENCLEXTA [Suspect]
     Active Substance: VENETOCLAX
     Indication: Acute myeloid leukaemia
     Route: 048
     Dates: start: 20220623, end: 20220713
  6. VENCLEXTA [Suspect]
     Active Substance: VENETOCLAX
     Indication: Acute myeloid leukaemia
     Route: 048
     Dates: start: 20220331, end: 20220427
  7. VENCLEXTA [Suspect]
     Active Substance: VENETOCLAX
     Indication: Acute myeloid leukaemia
     Route: 048
     Dates: start: 20220217, end: 20220314
  8. VENCLEXTA [Suspect]
     Active Substance: VENETOCLAX
     Indication: Acute myeloid leukaemia
     Route: 048
     Dates: start: 20230723, end: 20230724
  9. VENCLEXTA [Suspect]
     Active Substance: VENETOCLAX
     Indication: Acute myeloid leukaemia
     Route: 048
     Dates: start: 20221121, end: 20221204
  10. VENCLEXTA [Suspect]
     Active Substance: VENETOCLAX
     Indication: Acute myeloid leukaemia
     Route: 048
     Dates: start: 20220512, end: 20220530
  11. VENCLEXTA [Suspect]
     Active Substance: VENETOCLAX
     Indication: Acute myeloid leukaemia
     Route: 048
     Dates: start: 20220215, end: 20220215
  12. VENCLEXTA [Suspect]
     Active Substance: VENETOCLAX
     Indication: Acute myeloid leukaemia
     Route: 048
     Dates: start: 20230303, end: 20230309
  13. AMOXICILLIN [Concomitant]
     Active Substance: AMOXICILLIN
     Indication: Neutrophil count decreased
     Dates: start: 20220922, end: 20220923
  14. FILGRASTIM [Concomitant]
     Active Substance: FILGRASTIM
     Indication: Neutrophil count decreased
     Dosage: FORM STRENGTH: 75 MICROGRAM
     Dates: start: 20221105, end: 20221105
  15. FILGRASTIM [Concomitant]
     Active Substance: FILGRASTIM
     Indication: Neutrophil count decreased
     Dosage: FORM STRENGTH: 75 MICROGRAM
     Dates: start: 20220716, end: 20220716
  16. FILGRASTIM [Concomitant]
     Active Substance: FILGRASTIM
     Indication: Neutrophil count decreased
     Dosage: FORM STRENGTH: 75 MICROGRAM
     Dates: start: 20220908, end: 20220909
  17. FILGRASTIM [Concomitant]
     Active Substance: FILGRASTIM
     Indication: Neutrophil count decreased
     Dosage: FORM STRENGTH: 75 MICROGRAM
     Dates: start: 20221222, end: 20221222
  18. FILGRASTIM [Concomitant]
     Active Substance: FILGRASTIM
     Indication: Neutrophil count decreased
     Dosage: FORM STRENGTH: 75 MICROGRAM
     Dates: start: 20220929, end: 20220929
  19. FILGRASTIM [Concomitant]
     Active Substance: FILGRASTIM
     Indication: Neutrophil count decreased
     Dosage: FORM STRENGTH: 75 MICROGRAM
     Dates: start: 20221031, end: 20221031
  20. FILGRASTIM [Concomitant]
     Active Substance: FILGRASTIM
     Indication: Neutrophil count decreased
     Dosage: FORM STRENGTH: 75 MICROGRAM
     Dates: start: 20221215, end: 20221215
  21. FILGRASTIM [Concomitant]
     Active Substance: FILGRASTIM
     Indication: Neutrophil count decreased
     Dosage: FORM STRENGTH: 75 MICROGRAM
     Dates: start: 20221102, end: 20221102
  22. FILGRASTIM [Concomitant]
     Active Substance: FILGRASTIM
     Indication: Neutrophil count decreased
     Dosage: FORM STRENGTH: 75 MICROGRAM
     Dates: start: 20220428, end: 20220505
  23. FILGRASTIM [Concomitant]
     Active Substance: FILGRASTIM
     Indication: Neutrophil count decreased
     Dosage: FORM STRENGTH: 75 MICROGRAM
     Dates: start: 20221208, end: 20221208
  24. FILGRASTIM [Concomitant]
     Active Substance: FILGRASTIM
     Indication: Neutrophil count decreased
     Dosage: FORM STRENGTH: 75 MICROGRAM
     Dates: start: 20220714, end: 20220714
  25. FILGRASTIM [Concomitant]
     Active Substance: FILGRASTIM
     Indication: Neutrophil count decreased
     Dosage: FORM STRENGTH: 75 MICROGRAM
     Dates: start: 20220309, end: 20220313
  26. FILGRASTIM [Concomitant]
     Active Substance: FILGRASTIM
     Indication: Neutrophil count decreased
     Dosage: FORM STRENGTH: 75 MICROGRAM
     Dates: start: 20221024, end: 20221024
  27. FILGRASTIM [Concomitant]
     Active Substance: FILGRASTIM
     Indication: Neutrophil count decreased
     Dosage: FORM STRENGTH: 75 MICROGRAM
     Dates: start: 20221020, end: 20221020
  28. FILGRASTIM [Concomitant]
     Active Substance: FILGRASTIM
     Indication: Neutrophil count decreased
     Dosage: FORM STRENGTH: 75 MICROGRAM
     Dates: start: 20220719, end: 20220719
  29. FILGRASTIM [Concomitant]
     Active Substance: FILGRASTIM
     Indication: Neutrophil count decreased
     Dosage: FORM STRENGTH: 75 MICROGRAM
     Dates: start: 20220319, end: 20220319
  30. FILGRASTIM [Concomitant]
     Active Substance: FILGRASTIM
     Indication: Neutrophil count decreased
     Dosage: FORM STRENGTH: 75 MICROGRAM
     Dates: start: 20220912, end: 20220912
  31. FILGRASTIM [Concomitant]
     Active Substance: FILGRASTIM
     Indication: Neutrophil count decreased
     Dosage: FORM STRENGTH: 75 MICROGRAM
     Dates: start: 20220725, end: 20220725
  32. FILGRASTIM [Concomitant]
     Active Substance: FILGRASTIM
     Indication: Neutrophil count decreased
     Dosage: FORM STRENGTH: 75 MICROGRAM
     Dates: start: 20221228, end: 20221228
  33. FILGRASTIM [Concomitant]
     Active Substance: FILGRASTIM
     Indication: Neutrophil count decreased
     Dosage: FORM STRENGTH: 75 MICROGRAM
     Dates: start: 20220721, end: 20220721
  34. AZACITIDINE [Concomitant]
     Active Substance: AZACITIDINE
     Indication: Acute myeloid leukaemia
     Dosage: 75 MG/M2
     Dates: start: 20220404, end: 20220407
  35. AZACITIDINE [Concomitant]
     Active Substance: AZACITIDINE
     Indication: Acute myeloid leukaemia
     Dosage: 75 MG/M2
     Dates: start: 20220331, end: 20220402
  36. AZACITIDINE [Concomitant]
     Active Substance: AZACITIDINE
     Indication: Acute myeloid leukaemia
     Dosage: 75 MG/M2
     Dates: start: 20220512, end: 20220513
  37. AZACITIDINE [Concomitant]
     Active Substance: AZACITIDINE
     Indication: Acute myeloid leukaemia
     Dosage: 75 MG/M2
     Dates: start: 20220215, end: 20220221
  38. AZACITIDINE [Concomitant]
     Active Substance: AZACITIDINE
     Indication: Acute myeloid leukaemia
     Dosage: 75 MG/M2
     Dates: start: 20230110, end: 20230111
  39. AZACITIDINE [Concomitant]
     Active Substance: AZACITIDINE
     Indication: Acute myeloid leukaemia
     Dosage: 75 MG/M2
     Dates: start: 20220516, end: 20220518
  40. AZACITIDINE [Concomitant]
     Active Substance: AZACITIDINE
     Indication: Acute myeloid leukaemia
     Dosage: 75 MG/M2
     Dates: start: 20220818, end: 20220820
  41. AZACITIDINE [Concomitant]
     Active Substance: AZACITIDINE
     Indication: Acute myeloid leukaemia
     Dosage: 75 MG/M2
     Dates: start: 20230303, end: 20230304
  42. AZACITIDINE [Concomitant]
     Active Substance: AZACITIDINE
     Indication: Acute myeloid leukaemia
     Dosage: 75 MG/M2
     Dates: start: 20220627, end: 20220628
  43. AZACITIDINE [Concomitant]
     Active Substance: AZACITIDINE
     Indication: Acute myeloid leukaemia
     Dosage: 75 MG/M2
     Dates: start: 20230306, end: 20230308
  44. AZACITIDINE [Concomitant]
     Active Substance: AZACITIDINE
     Indication: Acute myeloid leukaemia
     Dosage: 75 MG/M2
     Dates: start: 20220623, end: 20220625
  45. AZACITIDINE [Concomitant]
     Active Substance: AZACITIDINE
     Indication: Acute myeloid leukaemia
     Dosage: 75 MG/M2
     Dates: start: 20220822, end: 20220823
  46. AZACITIDINE [Concomitant]
     Active Substance: AZACITIDINE
     Indication: Acute myeloid leukaemia
     Dosage: 75 MG/M2
     Dates: start: 20221121, end: 20221122
  47. AZACITIDINE [Concomitant]
     Active Substance: AZACITIDINE
     Indication: Acute myeloid leukaemia
     Dosage: 75 MG/M2
     Dates: start: 20230722, end: 20230723
  48. AZACITIDINE [Concomitant]
     Active Substance: AZACITIDINE
     Indication: Acute myeloid leukaemia
     Dosage: 75 MG/M2
     Dates: start: 20221005, end: 20221007
  49. AZACITIDINE [Concomitant]
     Active Substance: AZACITIDINE
     Indication: Acute myeloid leukaemia
     Dosage: 75 MG/M2
     Dates: start: 20221011, end: 20221012
  50. AZACITIDINE [Concomitant]
     Active Substance: AZACITIDINE
     Indication: Acute myeloid leukaemia
     Dosage: 75 MG/M2
     Dates: start: 20221124, end: 20221126
  51. AZACITIDINE [Concomitant]
     Active Substance: AZACITIDINE
     Indication: Acute myeloid leukaemia
     Dosage: 75 MG/M2
     Dates: start: 20230724, end: 20230727
  52. AZACITIDINE [Concomitant]
     Active Substance: AZACITIDINE
     Indication: Acute myeloid leukaemia
     Dosage: 75 MG/M2
     Dates: start: 20230105, end: 20230107
  53. CEFEPIME HYDROCHLORIDE [Concomitant]
     Active Substance: CEFEPIME HYDROCHLORIDE
     Indication: Neutrophil count decreased
     Route: 042
     Dates: start: 20230720, end: 20230731
  54. LEVOFLOXACIN HEMIHYDRATE [Concomitant]
     Active Substance: LEVOFLOXACIN
     Indication: Neutrophil count decreased
     Dates: start: 20230316, end: 20230406
  55. LEVOFLOXACIN HEMIHYDRATE [Concomitant]
     Active Substance: LEVOFLOXACIN
     Indication: Neutrophil count decreased
     Dates: start: 20230202, end: 20230208

REACTIONS (10)
  - Acute myeloid leukaemia [Fatal]
  - Neutrophil count decreased [Unknown]
  - Neutrophil count decreased [Unknown]
  - Neutrophil count decreased [Unknown]
  - Neutrophil count decreased [Unknown]
  - Neutrophil count decreased [Unknown]
  - Decreased appetite [Not Recovered/Not Resolved]
  - Leiomyosarcoma [Unknown]
  - General physical health deterioration [Unknown]
  - Myelosuppression [Unknown]

NARRATIVE: CASE EVENT DATE: 20230719
